FAERS Safety Report 9701630 (Version 2)
Quarter: 2013Q4

REPORT INFORMATION
  Report Type: Spontaneous
  Country: US (occurrence: US)
  Receive Date: 20131119
  Receipt Date: 20131119
  Transmission Date: 20140711
  Serious: No
  Sender: FDA-Public Use
  Company Number: US-ORACLE-2011S1000059

PATIENT
  Age: 55 Year
  Sex: Female

DRUGS (13)
  1. KRYSTEXXA INJECTION [Suspect]
     Indication: GOUT
     Route: 042
     Dates: start: 20110502, end: 20110502
  2. KRYSTEXXA INJECTION [Suspect]
     Indication: GOUT
     Route: 042
     Dates: start: 20110415, end: 20110415
  3. DECADRON /00016005/ [Concomitant]
     Indication: PREMEDICATION
     Dates: start: 20110502, end: 20110502
  4. DECADRON /00016005/ [Concomitant]
     Indication: PREMEDICATION
     Dates: start: 20110415, end: 20110415
  5. BENADRYL /01563701/ [Concomitant]
     Indication: PREMEDICATION
     Dates: start: 20110502, end: 20110502
  6. BENADRYL /01563701/ [Concomitant]
     Indication: PREMEDICATION
     Dates: start: 20110415, end: 20110415
  7. TYLENOL /00020001/ [Concomitant]
     Indication: PREMEDICATION
     Dates: start: 20110502, end: 20110502
  8. TYLENOL /00020001/ [Concomitant]
     Indication: PREMEDICATION
     Dates: start: 20110415, end: 20110415
  9. ATENOLOL [Concomitant]
     Indication: PRODUCT USED FOR UNKNOWN INDICATION
  10. LISINOPRIL [Concomitant]
     Indication: PRODUCT USED FOR UNKNOWN INDICATION
  11. METFORMIN [Concomitant]
     Indication: PRODUCT USED FOR UNKNOWN INDICATION
  12. COLCHICINE [Concomitant]
     Indication: PRODUCT USED FOR UNKNOWN INDICATION
  13. FUROSEMIDE [Concomitant]
     Indication: PRODUCT USED FOR UNKNOWN INDICATION

REACTIONS (1)
  - Hypersensitivity [Unknown]
